FAERS Safety Report 25006882 (Version 1)
Quarter: 2025Q1

REPORT INFORMATION
  Report Type: Spontaneous
  Country: FR (occurrence: FR)
  Receive Date: 20250225
  Receipt Date: 20250225
  Transmission Date: 20250409
  Serious: Yes (Hospitalization, Other)
  Sender: SANOFI AVENTIS
  Company Number: None

PATIENT
  Age: 82 Year
  Sex: Female
  Weight: 120 kg

DRUGS (14)
  1. OFLOXACIN [Suspect]
     Active Substance: OFLOXACIN
     Indication: Sepsis
     Dosage: 1 DF, QD
     Route: 048
     Dates: start: 20241118, end: 20241125
  2. RIFADIN [Suspect]
     Active Substance: RIFAMPIN
     Indication: Sepsis
     Dosage: 4 DF, QD
     Route: 048
     Dates: start: 20241118, end: 20241123
  3. ENOXAPARIN SODIUM [Suspect]
     Active Substance: ENOXAPARIN SODIUM
     Indication: Thrombosis prophylaxis
     Dosage: 1 DF, QD
     Route: 058
     Dates: start: 20241116, end: 20241125
  4. IRBESARTAN [Suspect]
     Active Substance: IRBESARTAN
     Indication: Hypertension
     Dosage: 1 DF, QD
     Route: 048
     Dates: end: 20241123
  5. ENALAPRIL MALEATE [Suspect]
     Active Substance: ENALAPRIL MALEATE
     Indication: Hypertension
     Dosage: 20 MG, QD
     Route: 048
     Dates: end: 20241123
  6. KARDEGIC [Concomitant]
     Active Substance: ASPIRIN DL-LYSINE
  7. LATANOPROST [Concomitant]
     Active Substance: LATANOPROST
  8. FERROUS SULFATE [Concomitant]
     Active Substance: FERROUS SULFATE
  9. FOLIC ACID [Concomitant]
     Active Substance: FOLIC ACID
  10. CHOLECALCIFEROL [Concomitant]
     Active Substance: CHOLECALCIFEROL
  11. DESLORATADINE [Concomitant]
     Active Substance: DESLORATADINE
  12. ATORVASTATIN [Concomitant]
     Active Substance: ATORVASTATIN
  13. NEFOPAM HYDROCHLORIDE [Concomitant]
     Active Substance: NEFOPAM HYDROCHLORIDE
  14. EUPANTOL [Concomitant]
     Active Substance: PANTOPRAZOLE SODIUM

REACTIONS (2)
  - Acute kidney injury [Recovered/Resolved]
  - Urticaria [Recovered/Resolved]

NARRATIVE: CASE EVENT DATE: 20241123
